FAERS Safety Report 6711367-3 (Version None)
Quarter: 2010Q2

REPORT INFORMATION
  Report Type: 
  Country: None (occurrence: None)
  Receive Date: 20100505
  Receipt Date: 20100420
  Transmission Date: 20101027
  Serious: Yes (Hospitalization)
  Sender: FDA-Public Use
  Company Number: FR-JNJFOC-20100500619

PATIENT
  Sex: Male

DRUGS (8)
  1. IXPRIM [Suspect]
     Indication: ARTHRALGIA
     Route: 048
  2. PLAVIX [Concomitant]
  3. COVERSYL [Concomitant]
  4. TENORMIN [Concomitant]
  5. NEXIUM [Concomitant]
  6. TAHOR [Concomitant]
  7. KARDEGIC [Concomitant]
  8. STRESAM [Concomitant]

REACTIONS (8)
  - ABDOMINAL PAIN UPPER [None]
  - CHEST DISCOMFORT [None]
  - CHEST PAIN [None]
  - HOT FLUSH [None]
  - HYPERHIDROSIS [None]
  - LOSS OF CONSCIOUSNESS [None]
  - MALAISE [None]
  - PALLOR [None]
